FAERS Safety Report 8042832-7 (Version None)
Quarter: 2012Q1

REPORT INFORMATION
  Report Type: 
  Country: None (occurrence: None)
  Receive Date: 20120112
  Receipt Date: 20120103
  Transmission Date: 20120608
  Serious: Yes (Hospitalization)
  Sender: FDA-Public Use
  Company Number: CO-ASTRAZENECA-2011SE79005

PATIENT
  Sex: Male

DRUGS (1)
  1. ATACAND [Suspect]
     Indication: HYPERTENSION
     Route: 048
     Dates: start: 20010101, end: 20111221

REACTIONS (4)
  - HYPERTENSIVE CRISIS [None]
  - HYPERTENSION [None]
  - DRUG INEFFECTIVE [None]
  - COUNTERFEIT DRUG ADMINISTERED [None]
